FAERS Safety Report 6923378-3 (Version None)
Quarter: 2010Q3

REPORT INFORMATION
  Report Type: 
  Country: None (occurrence: None)
  Receive Date: 20100813
  Receipt Date: 20100809
  Transmission Date: 20110219
  Serious: Yes (Other)
  Sender: FDA-Public Use
  Company Number: JP-MERCK-1008USA01194

PATIENT
  Sex: Female

DRUGS (1)
  1. PEPCID [Suspect]
     Route: 041
     Dates: start: 20100807

REACTIONS (1)
  - ANAPHYLACTIC SHOCK [None]
